FAERS Safety Report 5573984-6 (Version None)
Quarter: 2007Q4

REPORT INFORMATION
  Report Type: 
  Country: None (occurrence: None)
  Receive Date: 20071213
  Receipt Date: 20071130
  Transmission Date: 20080405
  Serious: No
  Sender: FDA-Public Use
  Company Number: WSDF_00679

PATIENT
  Age: 68 Year
  Sex: Female
  Weight: 63.05 kg

DRUGS (5)
  1. WINRHO SDF [Suspect]
     Indication: IDIOPATHIC THROMBOCYTOPENIC PURPURA
     Dates: start: 20071004, end: 20071004
  2. LANTUS [Concomitant]
  3. METFORMIN [Concomitant]
  4. LOTENSIN [Concomitant]
  5. ACTONEL [Concomitant]

REACTIONS (21)
  - ABDOMINAL PAIN UPPER [None]
  - AGITATION [None]
  - ANXIETY [None]
  - ARTHRALGIA [None]
  - ASTHENIA [None]
  - BACK PAIN [None]
  - BLOOD GLUCOSE INCREASED [None]
  - CHILLS [None]
  - COUGH [None]
  - CYSTITIS [None]
  - DISCOMFORT [None]
  - DYSPNOEA [None]
  - EYE SWELLING [None]
  - FATIGUE [None]
  - FEELING ABNORMAL [None]
  - GASTROINTESTINAL PAIN [None]
  - HEADACHE [None]
  - INFLUENZA LIKE ILLNESS [None]
  - PETECHIAE [None]
  - TREMOR [None]
  - URINARY TRACT INFECTION [None]
